FAERS Safety Report 4500705-8 (Version None)
Quarter: 2004Q4

REPORT INFORMATION
  Report Type: 
  Country: None (occurrence: None)
  Receive Date: 20041115
  Receipt Date: 20041104
  Transmission Date: 20050328
  Serious: Yes (Other)
  Sender: FDA-Public Use
  Company Number: GB-BRISTOL-MYERS SQUIBB COMPANY-12757480

PATIENT

DRUGS (2)
  1. REYATAZ [Suspect]
     Route: 048
  2. SAQUINAVIR [Concomitant]

REACTIONS (2)
  - PORTAL VEIN THROMBOSIS [None]
  - VARICES OESOPHAGEAL [None]
